FAERS Safety Report 21492776 (Version 4)
Quarter: 2022Q4

REPORT INFORMATION
  Report Type: Report from Study
  Country: FR (occurrence: None)
  Receive Date: 20221021
  Receipt Date: 20221125
  Transmission Date: 20230112
  Serious: Yes (Hospitalization)
  Sender: FDA-Public Use
  Company Number: FR-ROCHE-3203470

PATIENT
  Age: 72 Year
  Sex: Female
  Weight: 71 kg

DRUGS (8)
  1. ATEZOLIZUMAB [Suspect]
     Active Substance: ATEZOLIZUMAB
     Indication: Neoplasm
     Dosage: ON 25/OCT/2022, LAST DOSE OF SUSPECT DRUG ADMINISTERED
     Route: 041
     Dates: start: 20221017, end: 20221017
  2. ACETAMINOPHEN [Concomitant]
     Active Substance: ACETAMINOPHEN
     Route: 048
  3. BROMAZEPAM [Concomitant]
     Active Substance: BROMAZEPAM
     Route: 048
  4. EBASTINE [Concomitant]
     Active Substance: EBASTINE
     Route: 048
  5. ACETAMINOPHEN [Concomitant]
     Active Substance: ACETAMINOPHEN
  6. EBASTINE [Concomitant]
     Active Substance: EBASTINE
     Route: 048
  7. ALDACTAZIDE [Concomitant]
     Active Substance: HYDROCHLOROTHIAZIDE\SPIRONOLACTONE
     Route: 048
  8. DAFLON [Concomitant]
     Route: 048

REACTIONS (3)
  - Pyrexia [Recovered/Resolved]
  - Triple negative breast cancer [Recovered/Resolved]
  - Acute pulmonary oedema [Recovered/Resolved]

NARRATIVE: CASE EVENT DATE: 20221017
